FAERS Safety Report 8309290-6 (Version None)
Quarter: 2012Q2

REPORT INFORMATION
  Report Type: 
  Country: None (occurrence: None)
  Receive Date: 20120424
  Receipt Date: 20120416
  Transmission Date: 20120825
  Serious: Yes (Other)
  Sender: FDA-Public Use
  Company Number: US-ASTRAZENECA-2012SE21612

PATIENT
  Age: 65 Year
  Sex: Female
  Weight: 63.5 kg

DRUGS (13)
  1. OMEPRAZOLE [Concomitant]
  2. LEVOTHYROXINE SODIUM [Concomitant]
  3. NEBULIZER [Concomitant]
     Dosage: PRN
  4. TRAZIDONE [Concomitant]
  5. VALIUM [Concomitant]
  6. ADVAIR DISKUS 100/50 [Concomitant]
  7. LAMICTAL [Concomitant]
  8. PRAVASTATIN [Concomitant]
  9. SEROQUEL [Suspect]
     Indication: SLEEP DISORDER
     Route: 048
     Dates: start: 20090101
  10. SEROQUEL [Suspect]
     Indication: BIPOLAR I DISORDER
     Route: 048
     Dates: start: 20090101
  11. SEROQUEL [Suspect]
     Indication: BIPOLAR DISORDER
     Route: 048
     Dates: start: 20090101
  12. ASPIRIN [Concomitant]
  13. ALBUTEROL [Concomitant]

REACTIONS (14)
  - GASTROOESOPHAGEAL REFLUX DISEASE [None]
  - RETINAL TEAR [None]
  - MENTAL DISORDER [None]
  - MALAISE [None]
  - DRUG WITHDRAWAL SYNDROME [None]
  - BODY HEIGHT DECREASED [None]
  - LUNG NEOPLASM [None]
  - SOMNOLENCE [None]
  - PSYCHOMOTOR HYPERACTIVITY [None]
  - VISUAL IMPAIRMENT [None]
  - INSOMNIA [None]
  - WEIGHT INCREASED [None]
  - INTENTIONAL DRUG MISUSE [None]
  - OFF LABEL USE [None]
